FAERS Safety Report 5763705-6 (Version None)
Quarter: 2008Q2

REPORT INFORMATION
  Report Type: 
  Country: None (occurrence: None)
  Receive Date: 20080610
  Receipt Date: 20080526
  Transmission Date: 20081010
  Serious: Yes (Other)
  Sender: FDA-Public Use
  Company Number: NL-TEVA-172358ISR

PATIENT
  Age: 5 Year
  Sex: Male

DRUGS (3)
  1. ALBUTEROL [Suspect]
     Route: 055
  2. FLUTICASONE PROPIONATE [Concomitant]
  3. CROMOLYN SODIUM [Concomitant]
     Route: 045

REACTIONS (2)
  - DENTAL CARIES [None]
  - GROWTH RETARDATION [None]
